FAERS Safety Report 19153238 (Version 1)
Quarter: 2021Q2

REPORT INFORMATION
  Report Type: Other
  Country: IT (occurrence: IT)
  Receive Date: 20210419
  Receipt Date: 20210419
  Transmission Date: 20210717
  Serious: Yes (Other)
  Sender: FDA-Public Use
  Company Number: IT-ROCHE-2810235

PATIENT
  Age: 78 Year
  Sex: Male
  Weight: 76 kg

DRUGS (13)
  1. AMLODIPINE [Concomitant]
     Active Substance: AMLODIPINE BESYLATE
  2. CINACALCET. [Concomitant]
     Active Substance: CINACALCET
  3. ARGATROBAN. [Concomitant]
     Active Substance: ARGATROBAN
  4. ENOXAPARIN [Concomitant]
     Active Substance: ENOXAPARIN
     Dosage: ON DAY 1
  5. CALCIUM HEPARINATE [Suspect]
     Active Substance: HEPARIN CALCIUM
     Indication: PRODUCT USED FOR UNKNOWN INDICATION
     Route: 058
  6. HYDROXYCHLOROQUINE [Concomitant]
     Active Substance: HYDROXYCHLOROQUINE
  7. AZITHROMYCIN ANHYDROUS. [Concomitant]
     Active Substance: AZITHROMYCIN ANHYDROUS
  8. CALCIUM [Concomitant]
     Active Substance: CALCIUM
  9. TOCILIZUMAB. [Suspect]
     Active Substance: TOCILIZUMAB
     Indication: SUSPECTED COVID-19
     Route: 065
  10. ATORVASTATIN [Concomitant]
     Active Substance: ATORVASTATIN
  11. VITAMINE D [Concomitant]
     Active Substance: CHOLECALCIFEROL
  12. WARFARIN [Concomitant]
     Active Substance: WARFARIN
  13. RED BLOOD CELLS [Concomitant]
     Active Substance: HUMAN RED BLOOD CELL

REACTIONS (1)
  - Heparin-induced thrombocytopenia [Recovered/Resolved]
